FAERS Safety Report 4843767-0 (Version None)
Quarter: 2005Q4

REPORT INFORMATION
  Report Type: 
  Country: None (occurrence: None)
  Receive Date: 20051202
  Receipt Date: 20051122
  Transmission Date: 20060501
  Serious: Yes (Other)
  Sender: FDA-Public Use
  Company Number: CO-AVENTIS-200520495GDDC

PATIENT
  Age: 70 Year
  Sex: Male

DRUGS (1)
  1. ALLEGRA [Suspect]
     Indication: RHINITIS
     Dosage: DOSE: 60 MG /120 MG TD
     Route: 048
     Dates: start: 20051104, end: 20051112

REACTIONS (2)
  - PROSTATIC OBSTRUCTION [None]
  - URINARY RETENTION [None]
